FAERS Safety Report 9678149 (Version 2)
Quarter: 2014Q2

REPORT INFORMATION
  Report Type: Spontaneous
  Country: GB (occurrence: GB)
  Receive Date: 20131108
  Receipt Date: 20140417
  Transmission Date: 20141212
  Serious: Yes (Hospitalization)
  Sender: FDA-Public Use
  Company Number: GB-PFIZER INC-2013317590

PATIENT
  Age: 72 Year
  Sex: Female

DRUGS (8)
  1. MORPHINE SULFATE [Suspect]
     Indication: CANCER PAIN
     Dosage: 60 MG, 2X/DAY
     Route: 048
  2. MORPHINE SULFATE [Suspect]
     Indication: CANCER PAIN
     Dosage: 20 MG, AS NEEDED
     Route: 048
  3. MORPHINE SULFATE [Suspect]
     Dosage: 10MG 4-HOURLY
  4. PREGABALIN [Concomitant]
     Indication: CANCER PAIN
     Dosage: 300 MG, 2X/DAY
     Route: 065
  5. PREGABALIN [Concomitant]
     Indication: NEURALGIA
  6. IBUPROFEN [Concomitant]
     Indication: CANCER PAIN
     Dosage: 400 MG, 3X/DAY
  7. IBUPROFEN [Concomitant]
     Indication: NEURALGIA
  8. MACROGOL [Concomitant]
     Indication: LAXATIVE SUPPORTIVE CARE
     Dosage: 2 SACHETS PER DAY

REACTIONS (4)
  - Sedation [Recovered/Resolved]
  - Abnormal dreams [Recovered/Resolved]
  - Blunted affect [Recovered/Resolved]
  - Myoclonus [Recovered/Resolved]
